FAERS Safety Report 7043609-1 (Version None)
Quarter: 2010Q4

REPORT INFORMATION
  Report Type: 
  Country: None (occurrence: None)
  Receive Date: 20101013
  Receipt Date: 20101008
  Transmission Date: 20110411
  Serious: Yes (Death, Hospitalization)
  Sender: FDA-Public Use
  Company Number: B0672244A

PATIENT
  Sex: Female
  Weight: 50 kg

DRUGS (7)
  1. TYKERB [Suspect]
     Indication: BREAST CANCER
     Dosage: 1250MG PER DAY
     Route: 048
     Dates: start: 20100803, end: 20100825
  2. XELODA [Concomitant]
     Dosage: 2400MG PER DAY
     Route: 048
     Dates: start: 20100803, end: 20100825
  3. DIGOXIN [Concomitant]
     Indication: CARDIAC FAILURE
     Route: 048
     Dates: start: 20100722, end: 20100830
  4. VASOLAN [Concomitant]
     Indication: TACHYCARDIA PAROXYSMAL
     Dosage: 120MG PER DAY
     Route: 048
     Dates: start: 20100722, end: 20100830
  5. FUROSEMIDE [Concomitant]
     Indication: CARDIAC FAILURE
     Route: 048
     Dates: start: 20100722, end: 20100830
  6. ALDACTONE [Concomitant]
     Indication: CARDIAC FAILURE
     Route: 048
     Dates: start: 20100722, end: 20100830
  7. RINDERON [Concomitant]
     Indication: MALAISE
     Route: 042
     Dates: start: 20100722, end: 20100901

REACTIONS (5)
  - DIARRHOEA [None]
  - INTERSTITIAL LUNG DISEASE [None]
  - PALMAR-PLANTAR ERYTHRODYSAESTHESIA SYNDROME [None]
  - PERICARDIAL EFFUSION [None]
  - STOMATITIS [None]
